FAERS Safety Report 20616219 (Version 2)
Quarter: 2022Q1

REPORT INFORMATION
  Report Type: Spontaneous
  Country: CA (occurrence: CA)
  Receive Date: 20220321
  Receipt Date: 20220328
  Transmission Date: 20220424
  Serious: No
  Sender: FDA-Public Use
  Company Number: CA-PFIZER INC-202101294835

PATIENT
  Age: 20 Year
  Sex: Female

DRUGS (7)
  1. GENOTROPIN [Suspect]
     Active Substance: SOMATROPIN
     Indication: Growth hormone deficiency
     Dosage: 250 UG, 1X/DAY
     Route: 058
     Dates: start: 20190424, end: 201907
  2. GENOTROPIN [Suspect]
     Active Substance: SOMATROPIN
     Dosage: 300 UG, 1X/DAY
     Route: 058
     Dates: start: 201907
  3. SYNTHROID [Concomitant]
     Active Substance: LEVOTHYROXINE SODIUM
     Dosage: 0.150 MG
  4. ALESSE 28 [Concomitant]
     Active Substance: ETHINYL ESTRADIOL\LEVONORGESTREL
     Dosage: UNK
  5. DDAVP [Concomitant]
     Active Substance: DESMOPRESSIN ACETATE
     Dosage: UNK
     Route: 045
  6. CONCERTA [Concomitant]
     Active Substance: METHYLPHENIDATE HYDROCHLORIDE
     Dosage: 54 MG
  7. CORTEF [Concomitant]
     Active Substance: HYDROCORTISONE
     Dosage: 15 MG

REACTIONS (5)
  - Device breakage [Unknown]
  - Accidental exposure to product [Unknown]
  - Exposure via skin contact [Unknown]
  - Syringe issue [Unknown]
  - Drug dose omission by device [Unknown]
